FAERS Safety Report 5091190-9 (Version None)
Quarter: 2006Q3

REPORT INFORMATION
  Report Type: 
  Country: None (occurrence: None)
  Receive Date: 20060825
  Receipt Date: 20060825
  Transmission Date: 20061208
  Serious: Yes (Other)
  Sender: FDA-Public Use
  Company Number: None

PATIENT
  Sex: Male
  Weight: 82 kg

DRUGS (3)
  1. TIGECYCLINE        WYETH [Suspect]
     Indication: PNEUMONIA
     Dosage: 100 MG     X 1       IV
     Route: 042
     Dates: start: 20060815, end: 20060815
  2. TIGECYCLINE        WYETH [Suspect]
     Indication: STENOTROPHOMONAS INFECTION
     Dosage: 100 MG     X 1       IV
     Route: 042
     Dates: start: 20060815, end: 20060815
  3. TIGECYCLINE                 WYETH [Suspect]
     Dosage: 50 MG   Q 12 HOURS    IV  (DURATION: 15 DOSES)
     Route: 042
     Dates: start: 20060815, end: 20060821

REACTIONS (1)
  - BLOOD UREA INCREASED [None]
